FAERS Safety Report 7995876-5 (Version None)
Quarter: 2011Q4

REPORT INFORMATION
  Report Type: 
  Country: None (occurrence: None)
  Receive Date: 20111220
  Receipt Date: 20111026
  Transmission Date: 20120403
  Serious: Yes (Other)
  Sender: FDA-Public Use
  Company Number: US-PURDUE-USA-2011-0079879

PATIENT
  Sex: Male

DRUGS (1)
  1. OXYCONTIN [Suspect]
     Indication: HEADACHE
     Dosage: UNK
     Dates: start: 20000701, end: 20031201

REACTIONS (6)
  - DEPRESSION [None]
  - PAIN [None]
  - SUICIDE ATTEMPT [None]
  - DRUG DEPENDENCE [None]
  - MENTAL DISORDER [None]
  - JOINT INJURY [None]
